FAERS Safety Report 23695133 (Version 2)
Quarter: 2024Q2

REPORT INFORMATION
  Report Type: Spontaneous
  Country: US (occurrence: None)
  Receive Date: 20240402
  Receipt Date: 20240423
  Transmission Date: 20240716
  Serious: Yes (Other)
  Sender: FDA-Public Use
  Company Number: 2024A074372

PATIENT
  Sex: Female

DRUGS (2)
  1. TAGRISSO [Suspect]
     Active Substance: OSIMERTINIB
     Route: 048
  2. TAGRISSO [Suspect]
     Active Substance: OSIMERTINIB
     Route: 048

REACTIONS (11)
  - Keratitis [Unknown]
  - Glaucoma [Unknown]
  - Drug hypersensitivity [Unknown]
  - Headache [Unknown]
  - Eye disorder [Unknown]
  - Seasonal allergy [Unknown]
  - Asthenia [Unknown]
  - Dust allergy [Unknown]
  - Eye irritation [Unknown]
  - Skin burning sensation [Unknown]
  - Fear [Unknown]
